FAERS Safety Report 9011287 (Version 1)
Quarter: 2013Q1

REPORT INFORMATION
  Report Type: Spontaneous
  Country: US (occurrence: US)
  Receive Date: 20130109
  Receipt Date: 20130109
  Transmission Date: 20140127
  Serious: No
  Sender: FDA-Public Use
  Company Number: US-UPSHER-SMITH LABORATORIES, INC.-12003037

PATIENT
  Age: 21 Year
  Sex: Male

DRUGS (9)
  1. BENZTROPINE MESYLATE [Suspect]
     Indication: EXTRAPYRAMIDAL DISORDER
     Dosage: 1 MG, QD
     Route: 048
     Dates: start: 20120901
  2. GEODON [Concomitant]
     Indication: SCHIZOPHRENIA
     Dosage: 80 MG, UNK
     Dates: start: 201208, end: 201209
  3. GEODON                             /01487002/ [Concomitant]
     Dosage: 120 MG, UNK
     Dates: start: 201209, end: 20121031
  4. GEODON                             /01487002/ [Concomitant]
     Dosage: 160 MG, UNK
     Dates: start: 20121101
  5. ATIVAN [Concomitant]
     Indication: AGITATION
     Dosage: 2 MG, PRN
     Route: 048
     Dates: start: 20120615, end: 20120831
  6. ATIVAN [Concomitant]
     Dosage: 2 MG, QD
     Route: 048
     Dates: start: 20120901
  7. ZYPREXA [Concomitant]
     Dosage: UNK
     Dates: start: 20120615
  8. ABILIFY [Concomitant]
     Dosage: UNK
     Dates: start: 20120615
  9. DEPAKOTE ER [Concomitant]
     Dosage: UNK
     Dates: start: 20120615, end: 201210

REACTIONS (2)
  - Anxiety [Not Recovered/Not Resolved]
  - Hallucination, visual [Recovered/Resolved]
